FAERS Safety Report 13441891 (Version 1)
Quarter: 2017Q2

REPORT INFORMATION
  Report Type: Report from Study
  Country: US (occurrence: US)
  Receive Date: 20170414
  Receipt Date: 20170414
  Transmission Date: 20170830
  Serious: Yes (Hospitalization, Other)
  Sender: FDA-Public Use
  Company Number: US-UCBSA-2015031439

PATIENT
  Age: 24 Year
  Sex: Female
  Weight: 79 kg

DRUGS (9)
  1. PREDNISONE. [Concomitant]
     Active Substance: PREDNISONE
     Indication: RHEUMATOID ARTHRITIS
     Dosage: 5 MG, ONCE DAILY (QD)
     Route: 048
     Dates: start: 20150605, end: 20160105
  2. CERTOLIZUMAB PEGOL RA [Suspect]
     Active Substance: CERTOLIZUMAB PEGOL
     Indication: RHEUMATOID ARTHRITIS
     Dosage: 400 MG, EV 4 WEEKS
     Route: 058
     Dates: start: 20150505, end: 20150615
  3. PREDNISONE. [Concomitant]
     Active Substance: PREDNISONE
     Indication: MIXED CONNECTIVE TISSUE DISEASE
  4. MORPHINE [Concomitant]
     Active Substance: MORPHINE
     Indication: PAIN
     Dosage: UNK
     Dates: start: 2015
  5. PRENATAL VITAMINS [Concomitant]
     Active Substance: VITAMINS
     Indication: PREGNANCY
     Dosage: 1 DF, ONCE DAILY (QD)
     Route: 048
     Dates: start: 20150703, end: 20151115
  6. CERTOLIZUMAB PEGOL RA [Suspect]
     Active Substance: CERTOLIZUMAB PEGOL
     Indication: MIXED CONNECTIVE TISSUE DISEASE
     Dosage: 400 MG, EV 4 WEEKS
     Route: 058
     Dates: start: 20150917, end: 20151008
  7. CAFFEINE. [Concomitant]
     Active Substance: CAFFEINE
     Indication: UNEVALUABLE EVENT
     Dosage: 1 SERVIN TWICE WEEK
     Route: 048
     Dates: start: 20150605, end: 20160105
  8. METRONIDAZOLE. [Concomitant]
     Active Substance: METRONIDAZOLE
     Indication: FUNGAL INFECTION
     Dosage: 1 DAY
     Route: 061
     Dates: start: 20150731, end: 20150807
  9. TYLENOL [Concomitant]
     Active Substance: ACETAMINOPHEN
     Indication: ADNEXA UTERI PAIN
     Dosage: 2 DF, ONCE DAILY (QD)
     Route: 048
     Dates: start: 20150924, end: 20151008

REACTIONS (10)
  - Injection site erythema [Unknown]
  - Pain [Unknown]
  - Ovarian cyst [Unknown]
  - Premature delivery [Unknown]
  - Injection site pain [Recovered/Resolved]
  - Cholestasis of pregnancy [Not Recovered/Not Resolved]
  - Fungal infection [Recovered/Resolved]
  - Hypersensitivity [Unknown]
  - Injection site bruising [Unknown]
  - Pregnancy [Unknown]

NARRATIVE: CASE EVENT DATE: 2015
